FAERS Safety Report 9776016 (Version 2)
Quarter: 2013Q4

REPORT INFORMATION
  Report Type: Spontaneous
  Country: US (occurrence: US)
  Receive Date: 20131220
  Receipt Date: 20131220
  Transmission Date: 20140711
  Serious: No
  Sender: FDA-Public Use
  Company Number: US-SA-THYR-1001001

PATIENT
  Age: 47 Year
  Sex: Male

DRUGS (1)
  1. THYROGEN [Suspect]
     Indication: DIAGNOSTIC PROCEDURE
     Dosage: 0.9 MG, QD, 2 DOSES ON DAY 01 AND 02
     Route: 065
     Dates: start: 201308, end: 201308

REACTIONS (2)
  - Thyroglobulin decreased [Not Recovered/Not Resolved]
  - Blood thyroid stimulating hormone decreased [Not Recovered/Not Resolved]
